FAERS Safety Report 16934603 (Version 2)
Quarter: 2019Q4

REPORT INFORMATION
  Report Type: Spontaneous
  Country: US (occurrence: US)
  Receive Date: 20191018
  Receipt Date: 20191108
  Transmission Date: 20200122
  Serious: Yes (Hospitalization)
  Sender: FDA-Public Use
  Company Number: US-UNITED THERAPEUTICS-UNT-2019-015458

PATIENT
  Age: 61 Year
  Sex: Female
  Weight: 88.89 kg

DRUGS (4)
  1. ADEMPAS [Suspect]
     Active Substance: RIOCIGUAT
     Indication: PRODUCT USED FOR UNKNOWN INDICATION
     Dosage: UNK
     Route: 065
  2. REMODULIN [Suspect]
     Active Substance: TREPROSTINIL
     Indication: PULMONARY ARTERIAL HYPERTENSION
     Dosage: 0.052 ?G/KG, CONTINUING
     Route: 058
     Dates: start: 20170303
  3. REMODULIN [Suspect]
     Active Substance: TREPROSTINIL
     Dosage: UNK UNK, CONTINUING
     Route: 058
  4. REMODULIN [Suspect]
     Active Substance: TREPROSTINIL
     Dosage: 0.048 ?G/KG, CONTINUING
     Route: 058

REACTIONS (20)
  - Oedema peripheral [Not Recovered/Not Resolved]
  - Dizziness [Unknown]
  - Diarrhoea [Unknown]
  - Renal disorder [Unknown]
  - Dyspepsia [Unknown]
  - Infusion site pain [Not Recovered/Not Resolved]
  - Asthenia [Unknown]
  - Rales [Unknown]
  - Infection [Unknown]
  - Fluid retention [Unknown]
  - Hypotension [Unknown]
  - Infusion site infection [Unknown]
  - Blood creatinine increased [Unknown]
  - Flatulence [Unknown]
  - Blood potassium decreased [Unknown]
  - Decreased appetite [Unknown]
  - Anaemia [Unknown]
  - Dehydration [Unknown]
  - Abdominal distension [Unknown]
  - Dyspnoea exertional [Unknown]

NARRATIVE: CASE EVENT DATE: 20190903
